FAERS Safety Report 9181758 (Version 2)
Quarter: 2013Q2

REPORT INFORMATION
  Report Type: Spontaneous
  Country: GB (occurrence: GB)
  Receive Date: 20130322
  Receipt Date: 20130411
  Transmission Date: 20140414
  Serious: Yes (Death, Hospitalization)
  Sender: FDA-Public Use
  Company Number: GB-JNJFOC-2001050027GB

PATIENT
  Age: 12 Year
  Sex: Female

DRUGS (8)
  1. MOTRIN [Suspect]
     Indication: MALAISE
     Route: 048
  2. MOTRIN [Suspect]
     Indication: PAIN
     Route: 048
  3. MOTRIN [Suspect]
     Indication: HEADACHE
     Route: 048
  4. MOTRIN [Suspect]
     Indication: PYREXIA
     Route: 048
  5. ACETAMINOPHEN [Suspect]
     Indication: MALAISE
  6. ACETAMINOPHEN [Suspect]
     Indication: PAIN
  7. ACETAMINOPHEN [Suspect]
     Indication: HEADACHE
  8. ACETAMINOPHEN [Suspect]
     Indication: PYREXIA

REACTIONS (18)
  - Death [Fatal]
  - Brain oedema [Fatal]
  - Pulmonary oedema [Fatal]
  - Meningitis streptococcal [Fatal]
  - Rash [Fatal]
  - Toxic shock syndrome streptococcal [Fatal]
  - Adrenal haemorrhage [Fatal]
  - Infection [Fatal]
  - Rash macular [None]
  - Tachycardia [None]
  - Rash erythematous [None]
  - Papilloedema [None]
  - Hypotonia [None]
  - Areflexia [None]
  - Blood pressure decreased [None]
  - Bradycardia [None]
  - Hypokalaemia [None]
  - Brain oedema [None]
